FAERS Safety Report 5202063-2 (Version None)
Quarter: 2007Q1

REPORT INFORMATION
  Report Type: 
  Country: None (occurrence: None)
  Receive Date: 20070103
  Receipt Date: 20061218
  Transmission Date: 20070707
  Serious: Yes (Hospitalization)
  Sender: FDA-Public Use
  Company Number: 30657

PATIENT
  Sex: Female

DRUGS (1)
  1. TAMBOCOR [Suspect]
     Indication: BUNDLE BRANCH BLOCK
     Route: 048

REACTIONS (2)
  - ATRIAL FIBRILLATION [None]
  - CARDIOACTIVE DRUG LEVEL ABOVE THERAPEUTIC [None]
